FAERS Safety Report 16900754 (Version 3)
Quarter: 2020Q2

REPORT INFORMATION
  Report Type: Spontaneous
  Country: US (occurrence: US)
  Receive Date: 20191009
  Receipt Date: 20200430
  Transmission Date: 20200713
  Serious: No
  Sender: FDA-Public Use
  Company Number: US-SA-2019SA271917

PATIENT
  Age: 55 Year
  Sex: Female

DRUGS (13)
  1. BUDESONIDE. [Concomitant]
     Active Substance: BUDESONIDE
     Indication: ASTHMA
     Dosage: .5 MG, QD
     Route: 055
     Dates: start: 2012
  2. DUPIXENT [Suspect]
     Active Substance: DUPILUMAB
     Indication: NASAL POLYPS
     Dosage: 300 MG, QOW
     Route: 058
     Dates: start: 20190918
  3. ESTRADIOL. [Concomitant]
     Active Substance: ESTRADIOL
     Indication: HORMONE REPLACEMENT THERAPY
     Dosage: 20 MG, QD
     Route: 061
     Dates: start: 2014
  4. LEVOTHYROXIN [Concomitant]
     Active Substance: LEVOTHYROXINE
     Indication: THYROID THERAPY
     Dosage: 0.025 MG, QD
     Route: 048
     Dates: start: 2012
  5. SINGULAIR [Concomitant]
     Active Substance: MONTELUKAST SODIUM
     Indication: ASTHMA
     Dosage: 10 MG, QD
     Route: 048
     Dates: start: 2003
  6. LATANOPROST. [Concomitant]
     Active Substance: LATANOPROST
     Indication: GLAUCOMA
     Dosage: .005 %, QD
     Dates: start: 2015
  7. NATURE-THROID [Concomitant]
     Active Substance: THYROID, PORCINE
     Indication: THYROID THERAPY
     Dosage: .25 G, QD
     Route: 048
     Dates: start: 2005
  8. PROGESTERONE. [Concomitant]
     Active Substance: PROGESTERONE
     Indication: HORMONE REPLACEMENT THERAPY
     Dosage: 200 MG, QD
     Route: 061
     Dates: start: 2014
  9. SYMBICORT [Concomitant]
     Active Substance: BUDESONIDE\FORMOTEROL FUMARATE DIHYDRATE
  10. DOXYCYCLIN [DOXYCYCLINE] [Concomitant]
     Active Substance: DOXYCYCLINE
  11. FLONASE ALLERGY RELIEF [Concomitant]
     Active Substance: FLUTICASONE PROPIONATE
     Indication: HYPERSENSITIVITY
     Dosage: 2 DF, BID
     Route: 055
     Dates: start: 2016
  12. FLONASE ALLERGY RELIEF [Concomitant]
     Active Substance: FLUTICASONE PROPIONATE
     Indication: POLYP
  13. TESTOSTERONE. [Concomitant]
     Active Substance: TESTOSTERONE
     Indication: HORMONE REPLACEMENT THERAPY
     Dosage: 4 MG, QD
     Route: 061
     Dates: start: 2014

REACTIONS (5)
  - Gastrointestinal disorder [Recovered/Resolved]
  - Muscle spasms [Recovered/Resolved]
  - Unevaluable event [Recovered/Resolved]
  - Pain [Recovered/Resolved]
  - Abdominal distension [Recovered/Resolved]

NARRATIVE: CASE EVENT DATE: 20190921
